FAERS Safety Report 14110044 (Version 1)
Quarter: 2017Q4

REPORT INFORMATION
  Report Type: Spontaneous
  Country: TR (occurrence: TR)
  Receive Date: 20171020
  Receipt Date: 20171020
  Transmission Date: 20180321
  Serious: Yes (Other)
  Sender: FDA-Public Use
  Company Number: TR-BIOVITRUM-2015TR0108

PATIENT
  Age: 25 Year
  Sex: Female
  Weight: 55 kg

DRUGS (3)
  1. PREDNISOLONE. [Concomitant]
     Active Substance: PREDNISOLONE
     Indication: COGAN^S SYNDROME
     Dates: start: 20140101
  2. KINERET [Suspect]
     Active Substance: ANAKINRA
     Dates: start: 20140101
  3. KINERET [Suspect]
     Active Substance: ANAKINRA
     Indication: COGAN^S SYNDROME

REACTIONS (2)
  - Abortion spontaneous [Recovered/Resolved]
  - Pregnancy [Recovered/Resolved]

NARRATIVE: CASE EVENT DATE: 2014
